FAERS Safety Report 8799142 (Version 1)
Quarter: 2012Q4

REPORT INFORMATION
  Report Type: 
  Country: US (occurrence: US)
  Receive Date: 20120920
  Receipt Date: 20120920
  Transmission Date: 20130627
  Serious: Yes (Other)
  Sender: FDA-Public Use
  Company Number: US-ASTRAZENECA-2012SE09625

PATIENT
  Sex: Male

DRUGS (1)
  1. ZESTRIL [Suspect]
     Route: 048

REACTIONS (4)
  - Myocardial infarction [Unknown]
  - Type 1 diabetes mellitus [Unknown]
  - Neuropathy peripheral [Unknown]
  - Hypertension [Unknown]
